FAERS Safety Report 7836426-3 (Version None)
Quarter: 2011Q4

REPORT INFORMATION
  Report Type: 
  Country: None (occurrence: None)
  Receive Date: 20111024
  Receipt Date: 20110328
  Transmission Date: 20120403
  Serious: Yes (Other)
  Sender: FDA-Public Use
  Company Number: US-ABBOTT-11P-163-0705767-00

PATIENT
  Sex: Female
  Weight: 53.118 kg

DRUGS (3)
  1. NORETHINDRONE [Concomitant]
     Indication: HORMONE REPLACEMENT THERAPY
  2. LUPRON DEPOT [Suspect]
     Indication: ENDOMETRIOSIS
     Dates: start: 20101021, end: 20110111
  3. UNKNOWN SEIZURE MEDICATIONS [Concomitant]
     Indication: EPILEPSY

REACTIONS (1)
  - CONVULSION [None]
